FAERS Safety Report 7113170-1 (Version None)
Quarter: 2010Q4

REPORT INFORMATION
  Report Type: 
  Country: None (occurrence: None)
  Receive Date: 20101119
  Receipt Date: 20101108
  Transmission Date: 20110411
  Serious: Yes (Hospitalization)
  Sender: FDA-Public Use
  Company Number: FR-CELGENEUS-056-21880-10111083

PATIENT
  Sex: Female

DRUGS (4)
  1. REVLIMID [Suspect]
     Indication: MULTIPLE MYELOMA
     Route: 048
     Dates: start: 20090928, end: 20100704
  2. VELCADE [Suspect]
     Indication: MULTIPLE MYELOMA
     Route: 051
     Dates: start: 20090928, end: 20100701
  3. DEXAMETHASONE [Suspect]
     Indication: MULTIPLE MYELOMA
     Route: 048
     Dates: start: 20090928, end: 20100704
  4. ENDOXAN [Concomitant]
     Dosage: 3 G/M2
     Route: 051
     Dates: start: 20091204, end: 20091204

REACTIONS (4)
  - CONJUNCTIVITIS [None]
  - FEBRILE NEUTROPENIA [None]
  - FOLLICULITIS [None]
  - OEDEMA [None]
